FAERS Safety Report 9638675 (Version 1)
Quarter: 2013Q4

REPORT INFORMATION
  Report Type: Spontaneous
  Country: US (occurrence: US)
  Receive Date: 20131022
  Receipt Date: 20131022
  Transmission Date: 20140711
  Serious: No
  Sender: FDA-Public Use
  Company Number: US-BRISTOL-MYERS SQUIBB COMPANY-19353135

PATIENT
  Age: 75 Year
  Sex: Male
  Weight: 68.03 kg

DRUGS (18)
  1. ELIQUIS [Suspect]
     Indication: ATRIAL FIBRILLATION
     Dates: start: 20130815, end: 201308
  2. XARELTO [Concomitant]
  3. SPIRIVA [Concomitant]
  4. GENACOL [Concomitant]
  5. PRAVASTATIN SODIUM [Concomitant]
  6. COMBIVENT [Concomitant]
  7. KLOR-CON [Concomitant]
  8. LASIX [Concomitant]
  9. CLONIDINE [Concomitant]
  10. COLACE [Concomitant]
  11. REQUIP [Concomitant]
  12. ADVAIR [Concomitant]
  13. PROAIR HFA [Concomitant]
  14. GUAIFENESIN [Concomitant]
  15. TOPROL [Concomitant]
  16. IMDUR [Concomitant]
  17. HYDRALAZINE [Concomitant]
  18. PHENYLEPHRINE HCL [Concomitant]

REACTIONS (2)
  - Rash macular [Unknown]
  - Eye colour change [Unknown]
